FAERS Safety Report 9707063 (Version 1)
Quarter: 2013Q4

REPORT INFORMATION
  Report Type: Spontaneous
  Country: US (occurrence: US)
  Receive Date: 20131125
  Receipt Date: 20131125
  Transmission Date: 20140711
  Serious: Yes (Other)
  Sender: FDA-Public Use
  Company Number: US-PFIZER INC-2013334378

PATIENT
  Age: 27 Year
  Sex: Female

DRUGS (4)
  1. MORPHINE SULFATE [Suspect]
     Indication: DRUG ABUSE
     Dosage: UNK
     Route: 065
  2. OXYCONTIN [Suspect]
     Indication: DRUG ABUSE
     Dosage: UNK
     Route: 065
  3. VICODIN [Suspect]
     Indication: DRUG ABUSE
     Dosage: UNK
     Route: 065
  4. VALIUM [Suspect]
     Indication: DRUG ABUSE
     Dosage: UNK
     Route: 065

REACTIONS (1)
  - Drug abuse [Unknown]
